FAERS Safety Report 4818053-5 (Version None)
Quarter: 2005Q4

REPORT INFORMATION
  Report Type: 
  Country: None (occurrence: None)
  Receive Date: 20051102
  Receipt Date: 20051027
  Transmission Date: 20060501
  Serious: Yes (Life-Threatening, Hospitalization, Other)
  Sender: FDA-Public Use
  Company Number: US-MERCK-0510USA09340

PATIENT
  Age: 77 Year
  Sex: Male

DRUGS (11)
  1. PROSCAR [Suspect]
     Indication: BENIGN PROSTATIC HYPERPLASIA
     Route: 048
     Dates: start: 20040101
  2. GLUCOTROL XL [Concomitant]
     Route: 065
  3. AMIODARONE [Concomitant]
     Route: 065
  4. ENALAPRIL MALEATE [Concomitant]
     Route: 065
  5. HUMULIN R [Concomitant]
     Route: 065
  6. ISOSORBIDE MONONITRATE [Concomitant]
     Route: 065
  7. ALLOPURINOL [Concomitant]
     Route: 065
  8. FAMOTIDINE [Concomitant]
     Route: 065
  9. SYNTHROID [Concomitant]
     Route: 065
  10. LEUPROLIDE ACETATE [Concomitant]
     Route: 065
  11. CASODEX [Concomitant]
     Route: 065

REACTIONS (2)
  - BONE SCAN ABNORMAL [None]
  - PROSTATE CANCER [None]
